FAERS Safety Report 22363101 (Version 1)
Quarter: 2023Q2

REPORT INFORMATION
  Report Type: Report from Study
  Country: US (occurrence: US)
  Receive Date: 20230525
  Receipt Date: 20230525
  Transmission Date: 20230721
  Serious: Yes (Hospitalization, Other)
  Sender: FDA-Public Use
  Company Number: US-ABBVIE-4772169

PATIENT
  Sex: Female

DRUGS (1)
  1. RINVOQ [Suspect]
     Active Substance: UPADACITINIB
     Indication: Rheumatoid arthritis
     Dosage: FORM STRENGTH: 30 MG?FIRST ADMIN DATE 15 MAR 2023?LAST ADMIN DATE 16 MAY 2023
     Route: 048

REACTIONS (9)
  - Lung abscess [Not Recovered/Not Resolved]
  - Illness [Not Recovered/Not Resolved]
  - Localised infection [Not Recovered/Not Resolved]
  - Foot fracture [Unknown]
  - Fall [Recovered/Resolved]
  - Pain [Unknown]
  - Rheumatoid arthritis [Unknown]
  - Fall [Unknown]
  - Sleeve gastrectomy [Unknown]

NARRATIVE: CASE EVENT DATE: 20230101
